FAERS Safety Report 6986711-2 (Version None)
Quarter: 2010Q3

REPORT INFORMATION
  Report Type: 
  Country: None (occurrence: None)
  Receive Date: 20100915
  Receipt Date: 20090722
  Transmission Date: 20110219
  Serious: No
  Sender: FDA-Public Use
  Company Number: US-WYE-H10272609

PATIENT
  Sex: Male

DRUGS (5)
  1. PRISTIQ [Suspect]
     Route: 048
     Dates: start: 20090715
  2. NEURONTIN [Concomitant]
  3. FLEXERIL [Concomitant]
  4. HYDROCODONE [Concomitant]
  5. PREVACID [Concomitant]

REACTIONS (1)
  - FATIGUE [None]
